FAERS Safety Report 24650075 (Version 1)
Quarter: 2024Q4

REPORT INFORMATION
  Report Type: Spontaneous
  Country: GB (occurrence: GB)
  Receive Date: 20241122
  Receipt Date: 20241122
  Transmission Date: 20250115
  Serious: Yes (Disabling, Other)
  Sender: TEVA
  Company Number: None

PATIENT

DRUGS (1)
  1. CLARITHROMYCIN [Suspect]
     Active Substance: CLARITHROMYCIN
     Indication: Skin infection
     Dosage: 500MG TWICE DAILY
     Route: 065
     Dates: start: 20241107, end: 20241112

REACTIONS (5)
  - Anxiety [Not Recovered/Not Resolved]
  - Tremor [Recovering/Resolving]
  - Cardiovascular symptom [Recovering/Resolving]
  - Blood pressure increased [Recovering/Resolving]
  - Insomnia [Recovering/Resolving]

NARRATIVE: CASE EVENT DATE: 20241108
